FAERS Safety Report 7145417-X (Version None)
Quarter: 2010Q4

REPORT INFORMATION
  Report Type: 
  Country: None (occurrence: None)
  Receive Date: 20101208
  Receipt Date: 20101201
  Transmission Date: 20110411
  Serious: Yes (Hospitalization)
  Sender: FDA-Public Use
  Company Number: GB-ROCHE-745309

PATIENT
  Sex: Female
  Weight: 50 kg

DRUGS (2)
  1. BEVACIZUMAB [Suspect]
     Indication: BREAST CANCER
     Dosage: CYCLE 1
     Route: 065
     Dates: start: 20101004
  2. DOCETAXEL [Suspect]
     Indication: BREAST CANCER
     Dosage: CYCLE 1
     Route: 065
     Dates: start: 20101004

REACTIONS (2)
  - NEUTROPENIC SEPSIS [None]
  - RESPIRATORY FAILURE [None]
